FAERS Safety Report 5715590-6 (Version None)
Quarter: 2008Q2

REPORT INFORMATION
  Report Type: 
  Country: None (occurrence: None)
  Receive Date: 20080423
  Receipt Date: 20080423
  Transmission Date: 20081010
  Serious: No
  Sender: FDA-Public Use
  Company Number: None

PATIENT
  Sex: Female
  Weight: 68.9467 kg

DRUGS (1)
  1. DILANTIN [Suspect]
     Indication: EPILEPSY
     Dosage: 100 MG 2 TIMES DAILY 3 TIMES 2 DAILY
     Dates: start: 19510101, end: 20080101

REACTIONS (2)
  - ANTICONVULSANT DRUG LEVEL INCREASED [None]
  - CONVULSION [None]
